FAERS Safety Report 13465023 (Version 1)
Quarter: 2017Q2

REPORT INFORMATION
  Report Type: Spontaneous
  Country: US (occurrence: US)
  Receive Date: 20170421
  Receipt Date: 20170421
  Transmission Date: 20170830
  Serious: No
  Sender: FDA-Public Use
  Company Number: US-ASTRAZENECA-2017SE38954

PATIENT
  Sex: Female
  Weight: 106.9 kg

DRUGS (2)
  1. ASPIRIN. [Concomitant]
     Active Substance: ASPIRIN
     Route: 048
  2. BRILINTA [Suspect]
     Active Substance: TICAGRELOR
     Indication: VASCULAR STENT STENOSIS
     Route: 048
     Dates: start: 20170220

REACTIONS (1)
  - Platelet function test abnormal [Not Recovered/Not Resolved]
